FAERS Safety Report 4618620-8 (Version None)
Quarter: 2005Q1

REPORT INFORMATION
  Report Type: 
  Country: None (occurrence: None)
  Receive Date: 20050323
  Receipt Date: 20050308
  Transmission Date: 20050727
  Serious: Yes (Death, Other)
  Sender: FDA-Public Use
  Company Number: USA041285095

PATIENT
  Age: 81 Year
  Sex: Female

DRUGS (7)
  1. XIGRIS [Suspect]
     Indication: SEPSIS
     Dosage: 24 UG/KG/HR
     Dates: start: 20041130, end: 20041203
  2. VASOPRESSIN INJECTION [Concomitant]
  3. EPOETIN NOS [Concomitant]
  4. VANCOMYCIN [Concomitant]
  5. ZOSYN [Concomitant]
  6. NOREPINEPHRINE [Concomitant]
  7. DOBUTAMINE HCL [Concomitant]

REACTIONS (1)
  - THROMBOCYTOPENIA [None]
